FAERS Safety Report 5873528-5 (Version None)
Quarter: 2008Q3

REPORT INFORMATION
  Report Type: 
  Country: None (occurrence: None)
  Receive Date: 20080908
  Receipt Date: 20080904
  Transmission Date: 20090109
  Serious: Yes (Death, Hospitalization)
  Sender: FDA-Public Use
  Company Number: JP-ASTRAZENECA-2008AP06929

PATIENT
  Age: 73 Year
  Sex: Female
  Weight: 28 kg

DRUGS (2)
  1. IRESSA [Suspect]
     Indication: LUNG NEOPLASM MALIGNANT
     Dosage: IN THE MORNING
     Route: 048
     Dates: start: 20080508, end: 20080522
  2. PROHEPARUM [Concomitant]
     Dosage: DOSE UNKNOWN
     Route: 048

REACTIONS (3)
  - DYSPNOEA [None]
  - INTERSTITIAL LUNG DISEASE [None]
  - MALAISE [None]
